FAERS Safety Report 7156361-6 (Version None)
Quarter: 2010Q4

REPORT INFORMATION
  Report Type: 
  Country: None (occurrence: None)
  Receive Date: 20101214
  Receipt Date: 20101209
  Transmission Date: 20110411
  Serious: Yes (Death, Hospitalization, Other)
  Sender: FDA-Public Use
  Company Number: US-AMGEN-QUU416377

PATIENT

DRUGS (25)
  1. NPLATE [Suspect]
     Indication: THROMBOCYTOPENIA
     Dosage: 750 A?G, QWK
     Route: 058
     Dates: start: 20100428, end: 20100602
  2. NPLATE [Suspect]
     Indication: IDIOPATHIC THROMBOCYTOPENIC PURPURA
     Dosage: 750 A?G, QWK
     Route: 058
     Dates: start: 20100428, end: 20100525
  3. NPLATE [Suspect]
     Dosage: 750 A?G, QWK
     Route: 058
     Dates: start: 20100428, end: 20100525
  4. NPLATE [Suspect]
     Dosage: 750 A?G, QWK
     Route: 058
     Dates: start: 20100428, end: 20100525
  5. NPLATE [Suspect]
     Dosage: 750 A?G, QWK
     Route: 058
     Dates: start: 20100428, end: 20100525
  6. NPLATE [Suspect]
     Dosage: 750 A?G, QWK
     Route: 058
     Dates: start: 20100428, end: 20100525
  7. NPLATE [Suspect]
     Dosage: 750 A?G, QWK
     Route: 058
     Dates: start: 20100428, end: 20100525
  8. NPLATE [Suspect]
     Dosage: 750 A?G, QWK
     Route: 058
     Dates: start: 20100428, end: 20100525
  9. NPLATE [Suspect]
     Dates: start: 20100428, end: 20100602
  10. CORTICOSTEROID NOS [Concomitant]
     Dosage: UNK UNK, UNK
     Dates: start: 20100401
  11. LENALIDOMIDE [Concomitant]
     Dosage: 10 MG, UNK
     Dates: start: 20100406, end: 20100601
  12. PREDNISONE [Concomitant]
     Dosage: 5 MG, QD
     Route: 048
     Dates: start: 20100511, end: 20100521
  13. PREDNISONE [Concomitant]
     Dosage: 60 MG, UNK
     Route: 048
     Dates: start: 20100420
  14. DEXAMETHASONE [Concomitant]
     Dosage: 40 MG, QD
     Route: 048
     Dates: start: 20100522, end: 20100525
  15. VIDAZA [Concomitant]
     Dosage: 75 MG/M2, UNK
     Dates: start: 20100604, end: 20100610
  16. BLOOD TRANSFUSION, AUXILIARY PRODUCTS [Concomitant]
  17. PROCHLORPERAZINE EDISYLATE [Concomitant]
     Indication: NAUSEA
     Dosage: 5 MG/ML, PRN
     Route: 048
     Dates: start: 20100628
  18. ONDANSETRON [Concomitant]
     Indication: NAUSEA
     Dosage: 4 MG, PRN
     Route: 048
     Dates: start: 20100628
  19. GLIPIZIDE [Concomitant]
     Dosage: 2.5 MG, QD
     Route: 048
     Dates: start: 20100611
  20. AMINOCAPROIC ACID [Concomitant]
     Dosage: 1000 MG, Q8H
     Route: 048
     Dates: start: 20100611
  21. ALLOPURINOL [Concomitant]
     Dosage: 300 MG, QD
     Route: 048
     Dates: start: 20100611
  22. MOXIFLOXACIN [Concomitant]
     Dosage: 400 MG, QD
     Route: 048
     Dates: start: 20100611
  23. CIPROFLOXACIN [Concomitant]
     Dosage: 500 MG, BID
     Route: 048
     Dates: start: 20100525
  24. FAMOTIDINE [Concomitant]
     Dosage: 40 MG, BID
     Route: 048
     Dates: start: 20090921
  25. CITRACAL [Concomitant]
     Route: 048

REACTIONS (8)
  - ACUTE LEUKAEMIA [None]
  - BONE MARROW RETICULIN FIBROSIS [None]
  - CHRONIC LYMPHOCYTIC LEUKAEMIA TRANSFORMATION [None]
  - DRUG INEFFECTIVE [None]
  - FATIGUE [None]
  - GASTROINTESTINAL HAEMORRHAGE [None]
  - REFRACTORY ANAEMIA WITH AN EXCESS OF BLASTS [None]
  - WHEELCHAIR USER [None]
